FAERS Safety Report 11771993 (Version 1)
Quarter: 2015Q4

REPORT INFORMATION
  Report Type: Report from Study
  Country: BR (occurrence: BR)
  Receive Date: 20151124
  Receipt Date: 20151124
  Transmission Date: 20160304
  Serious: Yes (Other)
  Sender: FDA-Public Use
  Company Number: PHHY2014BR059091

PATIENT
  Sex: Female
  Weight: 44 kg

DRUGS (16)
  1. ACLASTA [Suspect]
     Active Substance: ZOLEDRONIC ACID
     Dosage: UNK, Q12MO
     Route: 042
  2. CALCIUM [Concomitant]
     Active Substance: CALCIUM
     Indication: PRODUCT USED FOR UNKNOWN INDICATION
     Dosage: UNK
     Route: 065
  3. OSCAL [Concomitant]
     Active Substance: CALCIUM CARBONATE
     Indication: PRODUCT USED FOR UNKNOWN INDICATION
     Dosage: UNK
     Route: 065
  4. DOMPERIDONE [Concomitant]
     Active Substance: DOMPERIDONE
     Indication: FLATULENCE
     Dosage: 1 DF, QD
     Route: 065
     Dates: start: 2013
  5. CALCITRANS                         /01359501/ [Concomitant]
     Indication: PRODUCT USED FOR UNKNOWN INDICATION
     Dosage: UNK
     Route: 065
  6. ACLASTA [Suspect]
     Active Substance: ZOLEDRONIC ACID
     Indication: OSTEOPOROSIS
     Dosage: UNK, Q12MO
     Route: 042
     Dates: start: 2011
  7. PRESSAT [Concomitant]
     Active Substance: AMLODIPINE BESYLATE
     Indication: HYPERTENSION
     Dosage: 1 DF, QD
     Route: 065
     Dates: start: 2012
  8. LIPITOR [Concomitant]
     Active Substance: ATORVASTATIN CALCIUM
     Indication: HYPERTENSION
     Dosage: 1 DF, QD
     Route: 065
     Dates: start: 2012
  9. ICTUS [Concomitant]
     Active Substance: CARVEDILOL
     Indication: BLOOD DISORDER
     Dosage: 2 DF, QD
     Route: 065
  10. ALDACTONE [Concomitant]
     Active Substance: SPIRONOLACTONE
     Indication: BLOOD DISORDER
     Dosage: 1 DF, QD
     Route: 065
     Dates: start: 2012
  11. SOMALGIN [Concomitant]
     Active Substance: ASPIRIN\DIHYDROXYALUMINUM AMINOACETATE ANHYDROUS\MAGNESIUM CARBONATE
     Indication: BLOOD DISORDER
     Dosage: 1 DF, QD
     Route: 065
     Dates: start: 2012
  12. ACLASTA [Suspect]
     Active Substance: ZOLEDRONIC ACID
     Dosage: 5 MG, Q12MO
     Route: 042
  13. SIMVASTATIN. [Concomitant]
     Active Substance: SIMVASTATIN
     Indication: BLOOD CHOLESTEROL ABNORMAL
     Dosage: 1 DF, QD
     Route: 065
     Dates: start: 2012
  14. FOSAMAX PLUS D [Concomitant]
     Active Substance: ALENDRONATE SODIUM\CHOLECALCIFEROL
     Indication: PRODUCT USED FOR UNKNOWN INDICATION
     Route: 065
  15. ACLASTA [Suspect]
     Active Substance: ZOLEDRONIC ACID
     Dosage: UNK, Q12MO
     Route: 042
  16. PYRIDOXAMINE HYDROCHLORIDE\THIAMINE HYDROCHLORIDE\CYANOCOBALAMIN [Concomitant]
     Active Substance: CYANOCOBALAMIN\PYRIDOXAMINE HYDROCHLORIDE\THIAMINE HYDROCHLORIDE
     Indication: VITAMIN B COMPLEX DEFICIENCY
     Dosage: UNK, BID
     Route: 065
     Dates: start: 201509

REACTIONS (15)
  - Bone loss [Not Recovered/Not Resolved]
  - Condition aggravated [Unknown]
  - Erythema [Unknown]
  - Osteoporosis [Unknown]
  - Depression [Recovered/Resolved]
  - Hypertension [Unknown]
  - Drug ineffective [Unknown]
  - Skin cancer [Unknown]
  - Bone density decreased [Unknown]
  - Spinal pain [Unknown]
  - Bronchitis chronic [Unknown]
  - Skin swelling [Unknown]
  - Aortic calcification [Unknown]
  - Malaise [Not Recovered/Not Resolved]
  - Tachycardia [Unknown]

NARRATIVE: CASE EVENT DATE: 2012
